FAERS Safety Report 18989487 (Version 1)
Quarter: 2021Q1

REPORT INFORMATION
  Report Type: Spontaneous
  Country: AU (occurrence: AU)
  Receive Date: 20210310
  Receipt Date: 20210310
  Transmission Date: 20210420
  Serious: Yes (Life-Threatening, Hospitalization)
  Sender: FDA-Public Use
  Company Number: AU-GENERIC HEALTH PTY. LTD.-2021-02818

PATIENT
  Age: 40 Year
  Sex: Female

DRUGS (20)
  1. AZITHROMYCIN ANHYDROUS. [Suspect]
     Active Substance: AZITHROMYCIN ANHYDROUS
     Indication: BACILLUS INFECTION
     Dosage: UNK
     Route: 042
  2. AZITHROMYCIN ANHYDROUS. [Suspect]
     Active Substance: AZITHROMYCIN ANHYDROUS
     Indication: FOOD POISONING
  3. PLASMA [Concomitant]
     Active Substance: HUMAN PLASMA
     Indication: FOOD POISONING
  4. VITAMIN K [Concomitant]
     Active Substance: PHYTONADIONE
     Indication: FOOD POISONING
  5. N?ACETYLCYSTEINE [Concomitant]
     Active Substance: ACETYLCYSTEINE
     Indication: BACILLUS INFECTION
     Dosage: UNK
     Route: 065
  6. N?ACETYLCYSTEINE [Concomitant]
     Active Substance: ACETYLCYSTEINE
     Indication: FOOD POISONING
  7. MEROPENEM. [Suspect]
     Active Substance: MEROPENEM
     Indication: FOOD POISONING
  8. PIPERACILLIN AND TAZOBACTAM [Suspect]
     Active Substance: PIPERACILLIN SODIUM\TAZOBACTAM SODIUM
     Indication: BACILLUS INFECTION
     Dosage: UNK
     Route: 042
  9. VANCOMYCIN [Suspect]
     Active Substance: VANCOMYCIN
     Indication: BACILLUS INFECTION
     Dosage: 2 GRAM, QD (CONTINUOUS INFUSION 2 G/24 HOURS)
     Route: 042
  10. METRONIDAZOLE. [Suspect]
     Active Substance: METRONIDAZOLE
     Indication: BACILLUS INFECTION
     Dosage: UNK
     Route: 042
  11. PIPERACILLIN AND TAZOBACTAM [Suspect]
     Active Substance: PIPERACILLIN SODIUM\TAZOBACTAM SODIUM
     Indication: FOOD POISONING
  12. VANCOMYCIN [Suspect]
     Active Substance: VANCOMYCIN
     Indication: FOOD POISONING
  13. PLASMA [Concomitant]
     Active Substance: HUMAN PLASMA
     Indication: BACILLUS INFECTION
     Dosage: UNK
     Route: 065
  14. MAGNESIUM [Concomitant]
     Active Substance: MAGNESIUM
     Indication: VENTRICULAR TACHYCARDIA
     Dosage: UNK
     Route: 042
  15. METARAMINOL [Concomitant]
     Active Substance: METARAMINOL
     Indication: HYPOTENSION
     Dosage: UNK
     Route: 065
  16. NOREPINEPHRINE. [Concomitant]
     Active Substance: NOREPINEPHRINE
     Indication: SHOCK
     Dosage: UNK
     Route: 065
  17. METRONIDAZOLE. [Suspect]
     Active Substance: METRONIDAZOLE
     Indication: FOOD POISONING
     Dosage: 500 MILLIGRAM, BID
     Route: 042
  18. MEROPENEM. [Suspect]
     Active Substance: MEROPENEM
     Indication: BACILLUS INFECTION
     Dosage: 2 GRAM, TID
     Route: 042
  19. VITAMIN K [Concomitant]
     Active Substance: PHYTONADIONE
     Indication: BACILLUS INFECTION
     Dosage: UNK
     Route: 065
  20. AMIODARONE [Concomitant]
     Active Substance: AMIODARONE
     Indication: ATRIAL FIBRILLATION
     Dosage: UNK
     Route: 065

REACTIONS (1)
  - Drug ineffective [Unknown]
